FAERS Safety Report 6788822-3 (Version None)
Quarter: 2010Q2

REPORT INFORMATION
  Report Type: 
  Country: None (occurrence: None)
  Receive Date: 20100623
  Receipt Date: 20080522
  Transmission Date: 20101027
  Serious: No
  Sender: FDA-Public Use
  Company Number: US-PFIZER INC-2008039264

PATIENT
  Sex: Female
  Weight: 73.636 kg

DRUGS (2)
  1. CADUET [Suspect]
     Indication: HYPERTENSION
     Dosage: 5/10MG
     Dates: start: 20071201
  2. CADUET [Suspect]
     Indication: BLOOD CHOLESTEROL INCREASED

REACTIONS (6)
  - DENTAL OPERATION [None]
  - ELECTROCARDIOGRAM ABNORMAL [None]
  - HYPERTENSION [None]
  - TOOTH EXTRACTION [None]
  - VERTIGO [None]
  - WRONG TECHNIQUE IN DRUG USAGE PROCESS [None]
